FAERS Safety Report 25488337 (Version 1)
Quarter: 2025Q2

REPORT INFORMATION
  Report Type: Spontaneous
  Country: GB (occurrence: GB)
  Receive Date: 20250627
  Receipt Date: 20250627
  Transmission Date: 20250717
  Serious: Yes (Other)
  Sender: ELI LILLY AND COMPANY
  Company Number: None

PATIENT
  Sex: Female

DRUGS (1)
  1. MOUNJARO [Suspect]
     Active Substance: TIRZEPATIDE
     Indication: Product used for unknown indication
     Route: 065

REACTIONS (6)
  - Jaundice [Unknown]
  - Headache [Unknown]
  - Dyspnoea [Unknown]
  - Vomiting [Unknown]
  - Diarrhoea [Unknown]
  - Dyspepsia [Unknown]
